FAERS Safety Report 9252615 (Version 1)
Quarter: 2013Q1

REPORT INFORMATION
  Report Type: Spontaneous
  Country: US (occurrence: None)
  Receive Date: 20130305
  Receipt Date: 20130305
  Transmission Date: 20140127
  Serious: Yes (Hospitalization)
  Sender: FDA-Public Use
  Company Number: 163-21880-12091491 (0)

PATIENT
  Age: 68 Year
  Sex: Male

DRUGS (9)
  1. REVLIMID [Suspect]
     Indication: PLASMA CELL MYELOMA
     Dosage: 10 MG, 14 IN 14 D
     Route: 048
     Dates: start: 20110201
  2. ACYCLOVIR [Suspect]
  3. COLACE (DOCUSATE SODIUM) [Suspect]
  4. LASIX (FUROSEMIDE) [Suspect]
  5. LYRICA (PREGABALIN) [Suspect]
  6. OMEGA 3 [Suspect]
  7. WARFARIN [Suspect]
  8. XALATAN (LATANOPROST) [Suspect]
  9. XANAX (ALPRAZOLAM) [Suspect]

REACTIONS (1)
  - Diarrhoea [None]
